FAERS Safety Report 5787603-7 (Version None)
Quarter: 2008Q2

REPORT INFORMATION
  Report Type: 
  Country: None (occurrence: None)
  Receive Date: 20080625
  Receipt Date: 20080617
  Transmission Date: 20081010
  Serious: Yes (Hospitalization, Other)
  Sender: FDA-Public Use
  Company Number: US-MERCK-0805USA03347

PATIENT
  Age: 73 Year
  Sex: Female
  Weight: 70 kg

DRUGS (5)
  1. FOSAMAX PLUS D [Suspect]
     Indication: OSTEOPOROSIS
     Route: 048
     Dates: start: 20070614, end: 20080514
  2. TOPROL-XL [Concomitant]
     Route: 065
  3. PREMPRO [Concomitant]
     Route: 065
  4. FOSAMAX [Suspect]
     Indication: OSTEOPOROSIS
     Route: 048
     Dates: start: 19960501, end: 20001130
  5. FOSAMAX [Suspect]
     Route: 048
     Dates: start: 20010201

REACTIONS (1)
  - ATRIAL FIBRILLATION [None]
